FAERS Safety Report 13830771 (Version 1)
Quarter: 2017Q3

REPORT INFORMATION
  Report Type: Spontaneous
  Country: CA (occurrence: CA)
  Receive Date: 20170803
  Receipt Date: 20170803
  Transmission Date: 20171127
  Serious: Yes (Other)
  Sender: FDA-Public Use
  Company Number: CA-VIRTUS PHARMACEUTICALS, LLC-2017VTS00645

PATIENT
  Age: 24 Year
  Sex: Female

DRUGS (1)
  1. PROGESTERONE. [Suspect]
     Active Substance: PROGESTERONE
     Indication: HAEMORRHAGE IN PREGNANCY
     Route: 067

REACTIONS (2)
  - Exposure during pregnancy [Recovered/Resolved]
  - Tolosa-Hunt syndrome [Recovered/Resolved]
